FAERS Safety Report 12830634 (Version 4)
Quarter: 2018Q3

REPORT INFORMATION
  Report Type: Spontaneous
  Country: FR (occurrence: FR)
  Receive Date: 20161007
  Receipt Date: 20180726
  Transmission Date: 20181010
  Serious: Yes (Hospitalization)
  Sender: FDA-Public Use
  Company Number: FR-ASTRAZENECA-2016SF05173

PATIENT
  Age: 50 Year
  Sex: Female
  Weight: 135 kg

DRUGS (9)
  1. EBASTINE [Suspect]
     Active Substance: EBASTINE
     Indication: URTICARIA
     Route: 048
     Dates: start: 20160602, end: 20160820
  2. INEXIUM [Suspect]
     Active Substance: ESOMEPRAZOLE
     Indication: PRODUCT USED FOR UNKNOWN INDICATION
     Dosage: 40.0MG UNKNOWN
     Route: 048
     Dates: start: 20160708, end: 20160826
  3. ATARAX [Suspect]
     Active Substance: HYDROXYZINE HYDROCHLORIDE
     Indication: URTICARIA
     Route: 065
     Dates: start: 201606, end: 20160826
  4. LASILIX FAIBLE [Suspect]
     Active Substance: FUROSEMIDE
     Indication: PRODUCT USED FOR UNKNOWN INDICATION
     Dosage: 20.0MG UNKNOWN
     Route: 048
     Dates: start: 20160708, end: 20160826
  5. DECAPEPTYL [Suspect]
     Active Substance: TRIPTORELIN
     Indication: ANGIOMYXOMA
     Dosage: 4.0DF UNKNOWN
     Route: 030
     Dates: start: 201606, end: 20160727
  6. PAROXETINE. [Concomitant]
     Active Substance: PAROXETINE
  7. AMOXICILLIN. [Suspect]
     Active Substance: AMOXICILLIN
     Indication: THERAPEUTIC PROCEDURE
     Route: 048
     Dates: start: 20160602, end: 20160826
  8. LOSARTAN. [Concomitant]
     Active Substance: LOSARTAN
  9. CLAVULANIC ACID [Suspect]
     Active Substance: CLAVULANIC ACID
     Indication: THERAPEUTIC PROCEDURE
     Route: 048
     Dates: start: 20160602, end: 20160826

REACTIONS (1)
  - Drug reaction with eosinophilia and systemic symptoms [Recovered/Resolved]

NARRATIVE: CASE EVENT DATE: 20160820
